FAERS Safety Report 13581644 (Version 1)
Quarter: 2017Q2

REPORT INFORMATION
  Report Type: Report from Study
  Country: IT (occurrence: IT)
  Receive Date: 20170525
  Receipt Date: 20170525
  Transmission Date: 20170830
  Serious: Yes (Other)
  Sender: FDA-Public Use
  Company Number: IT-JNJFOC-20170517615

PATIENT

DRUGS (4)
  1. INFLIXIMAB, RECOMBINANT [Suspect]
     Active Substance: INFLIXIMAB
     Indication: PSORIASIS
     Route: 042
  2. INFLIXIMAB, RECOMBINANT [Suspect]
     Active Substance: INFLIXIMAB
     Indication: PSORIATIC ARTHROPATHY
     Route: 042
  3. USTEKINUMAB [Suspect]
     Active Substance: USTEKINUMAB
     Indication: PSORIATIC ARTHROPATHY
     Dosage: 45MG FOR PATIENT^S WEIGHING { OR EQUAL TO 100KG, 90MG FOR PATIENT^S MORE THAN 100 KG
     Route: 058
  4. USTEKINUMAB [Suspect]
     Active Substance: USTEKINUMAB
     Indication: PSORIASIS
     Dosage: 45MG FOR PATIENT^S WEIGHING { OR EQUAL TO 100KG, 90MG FOR PATIENT^S MORE THAN 100 KG
     Route: 058

REACTIONS (11)
  - Pneumonia [Unknown]
  - Acute hepatitis C [Unknown]
  - Cardiac failure [Unknown]
  - Chronic kidney disease [Unknown]
  - Transaminases increased [Unknown]
  - Gingivitis [Unknown]
  - Off label use [Unknown]
  - Product use issue [Unknown]
  - Papilloma viral infection [Unknown]
  - Therapeutic product ineffective [Unknown]
  - Urticaria [Unknown]
